FAERS Safety Report 7210922-4 (Version None)
Quarter: 2011Q1

REPORT INFORMATION
  Report Type: 
  Country: None (occurrence: None)
  Receive Date: 20110105
  Receipt Date: 20101228
  Transmission Date: 20110831
  Serious: Yes (Hospitalization, Other)
  Sender: FDA-Public Use
  Company Number: US-ELI_LILLY_AND_COMPANY-US201005000148

PATIENT
  Sex: Male

DRUGS (7)
  1. COZAAR [Concomitant]
  2. FORTEO [Suspect]
     Indication: OSTEOPOROSIS
     Dosage: 20 UG, DAILY (1/D)
     Dates: start: 20100322, end: 20100426
  3. ZETIA [Concomitant]
  4. METOPROLOL TARTRATE [Concomitant]
  5. CADUET [Concomitant]
  6. PLAVIX [Concomitant]
  7. NEXIUM [Concomitant]

REACTIONS (12)
  - PNEUMOTHORAX [None]
  - OPEN FRACTURE [None]
  - PERIPHERAL COLDNESS [None]
  - STRESS FRACTURE [None]
  - LOSS OF CONTROL OF LEGS [None]
  - RHINORRHOEA [None]
  - VITAMIN D DECREASED [None]
  - COUGH [None]
  - FALL [None]
  - RIB FRACTURE [None]
  - HIP FRACTURE [None]
  - SCRATCH [None]
